FAERS Safety Report 8612004-3 (Version None)
Quarter: 2012Q3

REPORT INFORMATION
  Report Type: 
  Country: None (occurrence: None)
  Receive Date: 20120822
  Receipt Date: 20120816
  Transmission Date: 20120928
  Serious: Yes (Congenital Anomaly)
  Sender: FDA-Public Use
  Company Number: JP-GLAXOSMITHKLINE-B0666743A

PATIENT
  Sex: Male
  Weight: 3.21 kg

DRUGS (4)
  1. PHENYTOIN [Concomitant]
     Indication: EPILEPSY
     Dosage: 250MG PER DAY
     Route: 064
     Dates: start: 20020101, end: 20080711
  2. LAMICTAL [Suspect]
     Dosage: 60MG TWICE PER DAY
     Route: 063
     Dates: start: 20100118
  3. LAMICTAL [Suspect]
     Indication: EPILEPSY
     Dosage: 60MG TWICE PER DAY
     Route: 064
     Dates: start: 20090625, end: 20100117
  4. PHENOBARBITAL TAB [Concomitant]
     Indication: EPILEPSY
     Dosage: 60MG PER DAY
     Route: 064
     Dates: start: 20020101, end: 20080711

REACTIONS (3)
  - CONGENITAL NAIL DISORDER [None]
  - FOETAL EXPOSURE DURING PREGNANCY [None]
  - EXPOSURE DURING BREAST FEEDING [None]
